FAERS Safety Report 13001776 (Version 1)
Quarter: 2016Q4

REPORT INFORMATION
  Report Type: Spontaneous
  Country: JP (occurrence: JP)
  Receive Date: 20161206
  Receipt Date: 20161206
  Transmission Date: 20170207
  Serious: Yes (Hospitalization)
  Sender: FDA-Public Use
  Company Number: JP-ASTELLAS-2016JP020728

PATIENT
  Age: 71 Year
  Sex: Female

DRUGS (2)
  1. VESICARE [Suspect]
     Active Substance: SOLIFENACIN SUCCINATE
     Indication: DYSURIA
     Route: 065
  2. BETANIS [Suspect]
     Active Substance: MIRABEGRON
     Indication: DYSURIA
     Route: 065

REACTIONS (3)
  - Urinary tract infection bacterial [Unknown]
  - Hyperammonaemia [Recovering/Resolving]
  - Urinary retention [Unknown]
